FAERS Safety Report 5129392-5 (Version None)
Quarter: 2006Q4

REPORT INFORMATION
  Report Type: 
  Country: None (occurrence: None)
  Receive Date: 20061012
  Receipt Date: 20060929
  Transmission Date: 20070319
  Serious: Yes (Other)
  Sender: FDA-Public Use
  Company Number: 2006119032

PATIENT
  Age: 43 Year
  Sex: Female

DRUGS (2)
  1. RELPAX [Suspect]
     Indication: MIGRAINE
     Dosage: 40 MG (20 MG, 2 IN 1 D), ORAL
     Route: 048
     Dates: end: 20060928
  2. ST. JOHN'S WORT (ST. JOHN'S WORT) [Suspect]
     Indication: MIGRAINE
     Dosage: 850 MG (425 MG, 2 IN 1 D), ORAL
     Route: 048
     Dates: start: 20060928, end: 20060928

REACTIONS (4)
  - BLOOD PRESSURE INCREASED [None]
  - DRUG INTERACTION [None]
  - HYPOAESTHESIA [None]
  - TACHYCARDIA [None]
